FAERS Safety Report 18363199 (Version 1)
Quarter: 2020Q4

REPORT INFORMATION
  Report Type: Spontaneous
  Country: MY (occurrence: MY)
  Receive Date: 20201009
  Receipt Date: 20201009
  Transmission Date: 20210114
  Serious: Yes (Other)
  Sender: FDA-Public Use
  Company Number: MY-B.I. PHARMACEUTICALS,INC./RIDGEFIELD-2020-BI-051299

PATIENT
  Age: 70 Year
  Sex: Female

DRUGS (7)
  1. OFEV [Suspect]
     Active Substance: NINTEDANIB
     Indication: IDIOPATHIC PULMONARY FIBROSIS
     Dosage: 150MG BD
     Route: 048
     Dates: start: 20180710, end: 20180807
  2. OFEV [Suspect]
     Active Substance: NINTEDANIB
     Dosage: 100MG BD
     Route: 048
     Dates: start: 20190724
  3. LOSARTAN. [Concomitant]
     Active Substance: LOSARTAN
     Indication: ESSENTIAL HYPERTENSION
     Dosage: 100MG OD
     Route: 065
  4. OFEV [Suspect]
     Active Substance: NINTEDANIB
     Dosage: 150MG BD
     Route: 048
     Dates: start: 20181003
  5. OFEV [Suspect]
     Active Substance: NINTEDANIB
     Dosage: 150MG OD
     Route: 048
     Dates: start: 20190110
  6. OFEV [Suspect]
     Active Substance: NINTEDANIB
     Dosage: 150MG ON 2 WEEKS
     Route: 048
     Dates: start: 20180912
  7. METFORMIN [Concomitant]
     Active Substance: METFORMIN HYDROCHLORIDE
     Indication: DIABETES MELLITUS
     Dosage: 1G BD
     Route: 065

REACTIONS (7)
  - Nausea [Recovered/Resolved]
  - Transaminases increased [Recovered/Resolved]
  - Vomiting [Recovered/Resolved]
  - Nausea [Recovered/Resolved]
  - Acute coronary syndrome [Unknown]
  - Vomiting [Recovered/Resolved]
  - Alanine aminotransferase increased [Recovered/Resolved]

NARRATIVE: CASE EVENT DATE: 201808
